FAERS Safety Report 8958434 (Version 1)
Quarter: 2012Q4

REPORT INFORMATION
  Report Type: Spontaneous
  Country: US (occurrence: None)
  Receive Date: 20121205
  Receipt Date: 20121205
  Transmission Date: 20130627
  Serious: Yes (Hospitalization)
  Sender: FDA-Public Use
  Company Number: None

PATIENT
  Age: 15 Year
  Sex: Female
  Weight: 81.65 kg

DRUGS (7)
  1. AMBIEN [Suspect]
  2. LITHIUM ER [Concomitant]
  3. OMEPRAZOLE [Concomitant]
  4. SEROQUEL [Concomitant]
  5. LEXAPRO [Concomitant]
  6. THYROID [Concomitant]
  7. VICODIN [Concomitant]

REACTIONS (2)
  - Vomiting [None]
  - Incorrect dose administered [None]
